FAERS Safety Report 4679102-0 (Version None)
Quarter: 2005Q2

REPORT INFORMATION
  Report Type: 
  Country: None (occurrence: None)
  Receive Date: 20050527
  Receipt Date: 20050406
  Transmission Date: 20051028
  Serious: No
  Sender: FDA-Public Use
  Company Number: PHEH2005US03993

PATIENT
  Age: 87 Year
  Sex: Female

DRUGS (3)
  1. ZELNORM [Suspect]
     Indication: CONSTIPATION
     Dosage: 6 MG, QD;  1/2 6MG TABLET
  2. PRILOSEC [Concomitant]
  3. ZOLOFT [Concomitant]

REACTIONS (1)
  - SOMNOLENCE [None]
